FAERS Safety Report 6531451-7 (Version None)
Quarter: 2010Q1

REPORT INFORMATION
  Report Type: 
  Country: None (occurrence: None)
  Receive Date: 20100108
  Receipt Date: 20091209
  Transmission Date: 20100710
  Serious: No
  Sender: FDA-Public Use
  Company Number: A0834306A

PATIENT
  Age: 72 Year
  Sex: Female

DRUGS (3)
  1. TYKERB [Suspect]
     Indication: BREAST CANCER
     Dosage: 250MG TWICE PER DAY
     Route: 048
     Dates: start: 20091209
  2. CARVEDILOL [Concomitant]
  3. SPIRONOLACTONE [Concomitant]

REACTIONS (1)
  - DIARRHOEA [None]
